FAERS Safety Report 7921537-4 (Version None)
Quarter: 2011Q4

REPORT INFORMATION
  Report Type: 
  Country: None (occurrence: None)
  Receive Date: 20111117
  Receipt Date: 20111111
  Transmission Date: 20120403
  Serious: No
  Sender: FDA-Public Use
  Company Number: US-BAYER-2011-110403

PATIENT
  Age: 16 Year
  Sex: Male
  Weight: 70.295 kg

DRUGS (2)
  1. ULTRAVIST 150 [Suspect]
     Indication: NUCLEAR MAGNETIC RESONANCE IMAGING
     Dosage: 80 ML, ONCE
     Route: 042
     Dates: start: 20111111, end: 20111111
  2. BARIUM [Concomitant]
     Dosage: UNK

REACTIONS (2)
  - URTICARIA [None]
  - PRURITUS [None]
